FAERS Safety Report 8094197-2 (Version None)
Quarter: 2012Q1

REPORT INFORMATION
  Report Type: 
  Country: None (occurrence: None)
  Receive Date: 20120130
  Receipt Date: 20120130
  Transmission Date: 20120608
  Serious: Yes (Other)
  Sender: FDA-Public Use
  Company Number: None

PATIENT
  Age: 46 Year
  Sex: Female
  Weight: 81.646 kg

DRUGS (1)
  1. TOPAMAX [Suspect]
     Indication: SLEEP DISORDER
     Dosage: 200.0 MG
     Route: 048
     Dates: start: 20111121, end: 20111223

REACTIONS (10)
  - AMNESIA [None]
  - CRYING [None]
  - TOOTH DISORDER [None]
  - HEADACHE [None]
  - VISUAL IMPAIRMENT [None]
  - SOMNOLENCE [None]
  - DEPRESSION [None]
  - DISTURBANCE IN ATTENTION [None]
  - CONFUSIONAL STATE [None]
  - VOMITING [None]
